FAERS Safety Report 4697787-X (Version None)
Quarter: 2005Q2

REPORT INFORMATION
  Report Type: 
  Country: None (occurrence: None)
  Receive Date: 20050621
  Receipt Date: 20050621
  Transmission Date: 20051028
  Serious: Yes (Hospitalization)
  Sender: FDA-Public Use
  Company Number: None

PATIENT
  Age: 56 Year
  Sex: Male
  Weight: 83.6 kg

DRUGS (2)
  1. POTASSIUM CHLORIDE [Suspect]
     Indication: SUBSTITUTION THERAPY
     Dosage: 5 TABS PO DAILY
     Route: 048
  2. FELODIPINE [Suspect]
     Indication: HYPERTENSION
     Dosage: 1 TAB PO DAILY
     Route: 048

REACTIONS (5)
  - BRADYCARDIA [None]
  - HYPERKALAEMIA [None]
  - HYPOTENSION [None]
  - INCORRECT DOSE ADMINISTERED [None]
  - SELF-MEDICATION [None]
